FAERS Safety Report 5788198-4 (Version None)
Quarter: 2008Q2

REPORT INFORMATION
  Report Type: 
  Country: None (occurrence: None)
  Receive Date: 20080620
  Receipt Date: 20080606
  Transmission Date: 20081010
  Serious: Yes (Hospitalization, Other)
  Sender: FDA-Public Use
  Company Number: PERC20080051

PATIENT
  Age: 63 Year
  Sex: Female
  Weight: 71.124 kg

DRUGS (8)
  1. PERCOCET [Suspect]
     Indication: BREAKTHROUGH PAIN
     Dosage: 1 TABLET BID, PRN, PER ORAL
     Route: 048
  2. OXYCONTIN [Suspect]
  3. AVANDIA [Suspect]
     Dosage: PER ORAL
     Route: 048
  4. PRANDIN [Suspect]
  5. LEXAPRO [Suspect]
  6. TRAZODONE HCL [Suspect]
  7. ACCUPRIL [Suspect]
  8. PRILOSEC [Concomitant]

REACTIONS (10)
  - BLOOD SODIUM DECREASED [None]
  - CONFUSIONAL STATE [None]
  - DEHYDRATION [None]
  - DIABETIC KETOACIDOSIS [None]
  - ELECTROCARDIOGRAM T WAVE INVERSION [None]
  - HYPERTENSION [None]
  - INTERNATIONAL NORMALISED RATIO DECREASED [None]
  - INTERNATIONAL NORMALISED RATIO INCREASED [None]
  - PAIN [None]
  - PNEUMONIA [None]
